FAERS Safety Report 13782885 (Version 1)
Quarter: 2017Q3

REPORT INFORMATION
  Report Type: Spontaneous
  Country: US (occurrence: US)
  Receive Date: 20170724
  Receipt Date: 20170724
  Transmission Date: 20171127
  Serious: No
  Sender: FDA-Public Use
  Company Number: US-PFIZER INC-2017314429

PATIENT
  Age: 65 Year
  Sex: Female

DRUGS (1)
  1. METHOTREXATE SODIUM. [Suspect]
     Active Substance: METHOTREXATE SODIUM
     Indication: RHEUMATOID ARTHRITIS
     Dosage: 8 DF, WEEKLY (8 TABLETS PER WEEK)
     Dates: start: 201312

REACTIONS (8)
  - Synovitis [Unknown]
  - Arthralgia [Unknown]
  - Restless legs syndrome [Unknown]
  - Condition aggravated [Unknown]
  - Peripheral swelling [Unknown]
  - Pain [Unknown]
  - Osteoarthritis [Unknown]
  - Blood pressure increased [Unknown]
